FAERS Safety Report 14035106 (Version 8)
Quarter: 2018Q1

REPORT INFORMATION
  Report Type: Report from Study
  Country: US (occurrence: US)
  Receive Date: 20171003
  Receipt Date: 20180321
  Transmission Date: 20180508
  Serious: Yes (Other)
  Sender: FDA-Public Use
  Company Number: US-PFIZER INC-2017424269

PATIENT
  Age: 71 Year
  Sex: Female

DRUGS (1)
  1. IBRANCE [Suspect]
     Active Substance: PALBOCICLIB
     Indication: BREAST CANCER
     Dosage: 125 MG, CYCLIC (DAILY; 3 WEEKS ON/1 WEEK OFF )
     Route: 048
     Dates: start: 20170920

REACTIONS (13)
  - Drug dose omission [Unknown]
  - Nasopharyngitis [Unknown]
  - Headache [Unknown]
  - Feeling cold [Unknown]
  - Nasal congestion [Unknown]
  - Liver function test decreased [Unknown]
  - Gastrooesophageal reflux disease [Unknown]
  - Fatigue [Unknown]
  - Nail disorder [Unknown]
  - Onychoclasis [Unknown]
  - Bone marrow failure [Unknown]
  - Hypertension [Unknown]
  - Dry skin [Unknown]

NARRATIVE: CASE EVENT DATE: 2017
